FAERS Safety Report 5921862-2 (Version None)
Quarter: 2008Q4

REPORT INFORMATION
  Report Type: 
  Country: None (occurrence: None)
  Receive Date: 20081017
  Receipt Date: 20081009
  Transmission Date: 20090506
  Serious: Yes (Other)
  Sender: FDA-Public Use
  Company Number: US-ROCHE-552269

PATIENT
  Sex: Male
  Weight: 83.9 kg

DRUGS (2)
  1. ACCUTANE [Suspect]
     Indication: ACNE
     Route: 065
     Dates: start: 19830617, end: 19830923
  2. ACCUTANE [Suspect]
     Dosage: 2 ONE DAY, 1 THE NEXT
     Route: 065
     Dates: start: 19830924, end: 19831111

REACTIONS (7)
  - ARTHRITIS [None]
  - COLITIS ULCERATIVE [None]
  - CROHN'S DISEASE [None]
  - HERNIA [None]
  - INFLAMMATORY BOWEL DISEASE [None]
  - IRRITABLE BOWEL SYNDROME [None]
  - RHEUMATOID ARTHRITIS [None]
